FAERS Safety Report 5135385-4 (Version None)
Quarter: 2006Q4

REPORT INFORMATION
  Report Type: 
  Country: None (occurrence: None)
  Receive Date: 20061026
  Receipt Date: 20050314
  Transmission Date: 20070319
  Serious: Yes (Death, Life-Threatening, Hospitalization, Disabling, Other)
  Sender: FDA-Public Use
  Company Number: BR-BRISTOL-MYERS SQUIBB COMPANY-12897948

PATIENT
  Age: 63 Year
  Sex: Male
  Weight: 64 kg

DRUGS (4)
  1. IRBESARTAN [Suspect]
     Indication: HYPERTENSION
     Dates: start: 20041117
  2. BLINDED: PLACEBO [Suspect]
     Indication: HYPERTENSION
     Dates: start: 20041117
  3. CLOPIDOGREL BISULFATE [Suspect]
     Indication: PROPHYLAXIS
     Dates: start: 20041117, end: 20050225
  4. ASPIRIN [Suspect]
     Indication: PROPHYLAXIS
     Dates: start: 20041117, end: 20050225

REACTIONS (4)
  - HAEMORRHAGE URINARY TRACT [None]
  - INTERVERTEBRAL DISC PROTRUSION [None]
  - LUNG INFECTION [None]
  - RENAL FAILURE [None]
